FAERS Safety Report 8822465 (Version 2)
Quarter: 2012Q4

REPORT INFORMATION
  Report Type: 
  Country: US (occurrence: US)
  Receive Date: 20121003
  Receipt Date: 20121121
  Transmission Date: 20130627
  Serious: No
  Sender: FDA-Public Use
  Company Number: US-009507513-1208USA001206

PATIENT
  Weight: 79.82 kg

DRUGS (2)
  1. INTRONA [Suspect]
     Indication: WHITE BLOOD CELL DISORDER
     Dosage: 0.5 ml, tiw
     Route: 058
     Dates: start: 201001
  2. INTRONA [Suspect]
     Dosage: 0.25 ml, tiw
     Route: 058

REACTIONS (11)
  - Gingival disorder [Recovered/Resolved]
  - Bone pain [Recovered/Resolved]
  - Thrombosis [Recovered/Resolved]
  - Hot flush [Recovered/Resolved]
  - Blood glucose increased [Recovered/Resolved]
  - Muscle spasms [Recovered/Resolved]
  - Nausea [Recovered/Resolved]
  - Chills [Recovered/Resolved]
  - Pyrexia [Recovered/Resolved]
  - Malaise [Recovered/Resolved]
  - Adverse drug reaction [Recovered/Resolved]
